FAERS Safety Report 23439164 (Version 3)
Quarter: 2024Q4

REPORT INFORMATION
  Report Type: Report from Study
  Country: US (occurrence: US)
  Receive Date: 20240124
  Receipt Date: 20241025
  Transmission Date: 20250115
  Serious: Yes (Other)
  Sender: REGENERON
  Company Number: US-REGENERON PHARMACEUTICALS, INC.-2024-012121

PATIENT
  Sex: Male

DRUGS (1)
  1. CEMIPLIMAB [Suspect]
     Active Substance: CEMIPLIMAB
     Indication: Squamous cell carcinoma of skin
     Dosage: 350 MG, Q3W
     Route: 042
     Dates: start: 202304, end: 202310

REACTIONS (5)
  - Disease progression [Unknown]
  - Pruritus [Recovered/Resolved]
  - Skin lesion [Unknown]
  - Nasopharyngitis [Recovered/Resolved]
  - Therapy cessation [Recovered/Resolved]
